FAERS Safety Report 4344986-2 (Version None)
Quarter: 2004Q2

REPORT INFORMATION
  Report Type: 
  Country: None (occurrence: None)
  Receive Date: 20040421
  Receipt Date: 20040421
  Transmission Date: 20050107
  Serious: Yes (Life-Threatening, Other)
  Sender: FDA-Public Use
  Company Number: None

PATIENT
  Age: 50 Year
  Sex: Male
  Weight: 84.369 kg

DRUGS (2)
  1. DURAGESIC [Suspect]
     Indication: BACK PAIN
     Dosage: 75 MCG PATCH
     Dates: start: 20021201
  2. DURAGESIC [Suspect]
     Indication: PAIN IN EXTREMITY
     Dosage: 75 MCG PATCH
     Dates: start: 20021201

REACTIONS (8)
  - BACK PAIN [None]
  - CHILLS [None]
  - DRUG WITHDRAWAL SYNDROME [None]
  - FEELING ABNORMAL [None]
  - HYPERHIDROSIS [None]
  - PARAESTHESIA [None]
  - PHARMACEUTICAL PRODUCT COMPLAINT [None]
  - SUICIDAL IDEATION [None]
